FAERS Safety Report 10085977 (Version 1)
Quarter: 2014Q2

REPORT INFORMATION
  Report Type: Spontaneous
  Country: GB (occurrence: None)
  Receive Date: 20140416
  Receipt Date: 20140416
  Transmission Date: 20141212
  Serious: Yes (Other)
  Sender: FDA-Public Use
  Company Number: NL01PV14.35760

PATIENT
  Sex: Male

DRUGS (1)
  1. PETYME [Suspect]

REACTIONS (1)
  - Lenticular opacities [None]
